FAERS Safety Report 22298827 (Version 1)
Quarter: 2023Q2

REPORT INFORMATION
  Report Type: Spontaneous
  Country: US (occurrence: None)
  Receive Date: 20230508
  Receipt Date: 20230508
  Transmission Date: 20230722
  Serious: No
  Sender: FDA-Public Use
  Company Number: None

PATIENT
  Age: 57 Year
  Sex: Female
  Weight: 82.55 kg

DRUGS (23)
  1. CAPECITABINE [Suspect]
     Active Substance: CAPECITABINE
     Indication: Breast cancer female
     Dosage: FREQUENCY : TWICE A DAY;?
     Route: 048
     Dates: start: 202208
  2. CAPECITABINE [Suspect]
     Active Substance: CAPECITABINE
     Indication: Breast cancer female
     Dosage: FREQUENCY : TWICE A DAY;?
     Route: 048
     Dates: start: 202208
  3. AFINITOR [Concomitant]
     Active Substance: EVEROLIMUS
  4. AZITHROMYCIN [Concomitant]
     Active Substance: AZITHROMYCIN
  5. BACLOFEN [Concomitant]
     Active Substance: BACLOFEN
  6. COLACE [Concomitant]
     Active Substance: DOCUSATE SODIUM
  7. DEXAMETHASONE [Concomitant]
     Active Substance: DEXAMETHASONE
  8. DIPHENHYDRAMINE [Concomitant]
     Active Substance: DIPHENHYDRAMINE
  9. EVEROLIMUS [Concomitant]
     Active Substance: EVEROLIMUS
  10. EXEMESTANE [Concomitant]
     Active Substance: EXEMESTANE
  11. FULVESTRANT [Concomitant]
     Active Substance: FULVESTRANT
  12. NORCO [Concomitant]
     Active Substance: ACETAMINOPHEN\HYDROCODONE BITARTRATE
  13. IBUPROFEN [Concomitant]
     Active Substance: IBUPROFEN
  14. KISQALI [Concomitant]
     Active Substance: RIBOCICLIB
  15. LETROZOLE [Concomitant]
     Active Substance: LETROZOLE
  16. MELOXICAM [Concomitant]
     Active Substance: MELOXICAM
  17. NAPROXEN [Concomitant]
     Active Substance: NAPROXEN
  18. OXYCODONE [Concomitant]
     Active Substance: OXYCODONE
  19. PIQRAY [Concomitant]
     Active Substance: ALPELISIB
  20. TRAMADOL [Concomitant]
     Active Substance: TRAMADOL
  21. TRIAMCINOLONE [Concomitant]
     Active Substance: TRIAMCINOLONE
  22. ZITHROMAX [Concomitant]
     Active Substance: AZITHROMYCIN DIHYDRATE
  23. ZOMETA [Concomitant]
     Active Substance: ZOLEDRONIC ACID

REACTIONS (7)
  - Tenderness [None]
  - Skin exfoliation [None]
  - Nausea [None]
  - Fatigue [None]
  - Pain in extremity [None]
  - Pain in extremity [None]
  - Therapy interrupted [None]
